FAERS Safety Report 8643494 (Version 2)
Quarter: 2013Q3

REPORT INFORMATION
  Report Type: Report from Study
  Country: US (occurrence: PT)
  Receive Date: 20120629
  Receipt Date: 20130701
  Transmission Date: 20140515
  Serious: No
  Sender: FDA-Public Use
  Company Number: US-ABBOTT-12P-163-0905082-00

PATIENT
  Age: 33 Year
  Sex: Female

DRUGS (5)
  1. NORVIR SOFT GELATIN CAPSULES [Suspect]
     Indication: ANTIVIRAL TREATMENT
     Route: 065
     Dates: start: 20110214
  2. PREZISTA [Suspect]
     Indication: ANTIVIRAL TREATMENT
     Route: 048
     Dates: start: 20110214
  3. TRUVADA [Suspect]
     Indication: ANTIVIRAL TREATMENT
     Route: 065
     Dates: start: 20110214
  4. ISENTRESS [Suspect]
     Indication: ANTIVIRAL TREATMENT
     Route: 065
     Dates: start: 20110214
  5. RETROVIR [Suspect]
     Indication: ANTIVIRAL TREATMENT
     Dates: start: 20110725, end: 20110725

REACTIONS (1)
  - Anaemia [Unknown]
